FAERS Safety Report 20438625 (Version 1)
Quarter: 2022Q1

REPORT INFORMATION
  Report Type: Spontaneous
  Country: US (occurrence: None)
  Receive Date: 20220202
  Receipt Date: 20220202
  Transmission Date: 20220423
  Serious: Yes (Life-Threatening, Other)
  Sender: FDA-Public Use
  Company Number: None

PATIENT
  Age: 71 Year
  Sex: Male
  Weight: 108.86 kg

DRUGS (6)
  1. ROPINIROLE [Suspect]
     Active Substance: ROPINIROLE
     Indication: Restless legs syndrome
     Dosage: FREQUENCY : DAILY;?
     Route: 048
     Dates: start: 20030615, end: 20211220
  2. ROPINIROLE [Suspect]
     Active Substance: ROPINIROLE
     Indication: Tremor
  3. CLONAZEPAM [Concomitant]
     Active Substance: CLONAZEPAM
  4. ZOLPIDEM [Concomitant]
     Active Substance: ZOLPIDEM TARTRATE
  5. PROPRANOLOL [Concomitant]
     Active Substance: PROPRANOLOL HYDROCHLORIDE
  6. Senior formula Multi Vitamin [Concomitant]

REACTIONS (6)
  - Nausea [None]
  - Headache [None]
  - Hyperpyrexia [None]
  - Presyncope [None]
  - Gait disturbance [None]
  - Nonspecific reaction [None]

NARRATIVE: CASE EVENT DATE: 20220122
